FAERS Safety Report 9844521 (Version 1)
Quarter: 2013Q4

REPORT INFORMATION
  Report Type: Spontaneous
  Country: US (occurrence: None)
  Receive Date: 20131220
  Receipt Date: 20131220
  Transmission Date: 20140711
  Serious: Yes (Other)
  Sender: FDA-Public Use
  Company Number: 45109

PATIENT
  Age: 77 Year
  Sex: Male
  Weight: 84.82 kg

DRUGS (7)
  1. GLASSIA [Suspect]
     Indication: ALPHA-1 ANTI-TRYPSIN DEFICIENCY
     Dosage: 4750+/-1-% WEEL;U OV
     Route: 042
     Dates: start: 2010
  2. LISINOPRIL [Concomitant]
  3. LIPITOR [Concomitant]
  4. ASPIRIN [Concomitant]
  5. PREDNISONE [Concomitant]
  6. BRONCHODILATORS [Concomitant]
  7. OXYGEN [Concomitant]

REACTIONS (4)
  - Constipation [None]
  - Somnolence [None]
  - Abasia [None]
  - Chronic obstructive pulmonary disease [None]
